FAERS Safety Report 7777690-9 (Version None)
Quarter: 2011Q3

REPORT INFORMATION
  Report Type: 
  Country: None (occurrence: None)
  Receive Date: 20110922
  Receipt Date: 20110912
  Transmission Date: 20111222
  Serious: Yes (Other)
  Sender: FDA-Public Use
  Company Number: ACO_26616_2011

PATIENT
  Age: 61 Year
  Sex: Female

DRUGS (7)
  1. PREDNISONE [Concomitant]
  2. XANAX [Concomitant]
  3. TRICOR [Concomitant]
  4. FIORICET [Concomitant]
  5. AMPYRA [Suspect]
     Indication: GAIT DISTURBANCE
     Dosage: 10 MG, BID, ORAL
     Route: 048
     Dates: start: 20110820
  6. EFFEXOR [Concomitant]
  7. AVONEX [Suspect]
     Indication: PRODUCT USED FOR UNKNOWN INDICATION
     Dosage: INJECTION, 1ST DOSE
     Dates: start: 20110904, end: 20110101

REACTIONS (7)
  - MUSCLE SPASMS [None]
  - DIZZINESS [None]
  - RASH [None]
  - MULTIPLE SCLEROSIS RELAPSE [None]
  - NAUSEA [None]
  - PAIN [None]
  - CONVULSION [None]
